FAERS Safety Report 20010839 (Version 2)
Quarter: 2022Q1

REPORT INFORMATION
  Report Type: Spontaneous
  Country: IN (occurrence: IN)
  Receive Date: 20211028
  Receipt Date: 20220216
  Transmission Date: 20220423
  Serious: Yes (Death, Other)
  Sender: FDA-Public Use
  Company Number: IN-PFIZER INC-2020164390

PATIENT
  Age: 68 Year
  Sex: Female

DRUGS (3)
  1. PALBOCICLIB [Suspect]
     Active Substance: PALBOCICLIB
     Indication: Breast cancer metastatic
     Dosage: 125 MG, CYCLIC (ONCE A DAY, D1-D21)
     Route: 048
     Dates: start: 20181220
  2. PALBOCICLIB [Suspect]
     Active Substance: PALBOCICLIB
     Dosage: 125 MG, CYCLIC (ONCE A DAY, D1-D21 X 6 MONTHS)
     Route: 048
     Dates: start: 20210321, end: 20210914
  3. LETROZOLE [Concomitant]
     Active Substance: LETROZOLE
     Dosage: 2.5 MG, 1X/DAY X 6 MONTHS

REACTIONS (7)
  - Neoplasm progression [Fatal]
  - Spinal fracture [Unknown]
  - Accident [Unknown]
  - Gait inability [Unknown]
  - Illness [Unknown]
  - General physical health deterioration [Unknown]
  - Bedridden [Unknown]
